FAERS Safety Report 5684237-X (Version None)
Quarter: 2008Q1

REPORT INFORMATION
  Report Type: 
  Country: None (occurrence: None)
  Receive Date: 20080327
  Receipt Date: 20080327
  Transmission Date: 20080703
  Serious: Yes (Other)
  Sender: FDA-Public Use
  Company Number: None

PATIENT
  Sex: Male
  Weight: 64.54 kg

DRUGS (2)
  1. ETOPOSIDE [Suspect]
     Indication: CHEMOTHERAPY
     Dosage: 650MG/M DAILY SQ
     Route: 058
  2. CARBOPLATIN [Suspect]
     Indication: CHEMOTHERAPY
     Dosage: 600MG/M SQ
     Route: 058

REACTIONS (7)
  - BRADYCARDIA [None]
  - FEBRILE NEUTROPENIA [None]
  - HEADACHE [None]
  - HYPERTENSION [None]
  - MUCOSAL INFLAMMATION [None]
  - PANCYTOPENIA [None]
  - TRANSAMINASES INCREASED [None]
